FAERS Safety Report 8223784-3 (Version None)
Quarter: 2012Q1

REPORT INFORMATION
  Report Type: 
  Country: None (occurrence: None)
  Receive Date: 20120321
  Receipt Date: 20120321
  Transmission Date: 20120608
  Serious: Yes (Hospitalization)
  Sender: FDA-Public Use
  Company Number: None

PATIENT
  Age: 26 Year
  Sex: Female
  Weight: 122.46 kg

DRUGS (1)
  1. NORETHINDRONE ACETATE [Suspect]
     Indication: METRORRHAGIA
     Dosage: 5 MG
     Route: 048

REACTIONS (1)
  - HEPATIC ADENOMA [None]
